FAERS Safety Report 4896183-X (Version None)
Quarter: 2006Q1

REPORT INFORMATION
  Report Type: 
  Country: None (occurrence: None)
  Receive Date: 20060131
  Receipt Date: 20060126
  Transmission Date: 20060701
  Serious: Yes (Death, Hospitalization)
  Sender: FDA-Public Use
  Company Number: PHRM2006FR00614

PATIENT
  Age: 65 Year
  Sex: Male

DRUGS (9)
  1. NITRODERM [Suspect]
     Route: 062
     Dates: end: 20051005
  2. ESIDRIX [Suspect]
     Route: 048
     Dates: end: 20051005
  3. COTAREG [Suspect]
     Route: 048
     Dates: end: 20051005
  4. NOCTRAN [Suspect]
     Route: 048
     Dates: end: 20051005
  5. DIFFU K [Suspect]
     Route: 048
     Dates: end: 20051005
  6. SULFAMETHOXAZOLE W/TRIMETHOPRIM (COTRIMOXAZOLE) [Suspect]
     Route: 048
     Dates: start: 20050924, end: 20051005
  7. SIMVASTATIN [Suspect]
     Route: 048
     Dates: end: 20051005
  8. OGAST [Suspect]
     Route: 048
     Dates: end: 20051005
  9. DIGOXIN [Suspect]
     Route: 048
     Dates: end: 20051005

REACTIONS (14)
  - CHOLESTASIS [None]
  - CYTOLYTIC HEPATITIS [None]
  - DERMATITIS [None]
  - DIARRHOEA [None]
  - EOSINOPHILIA [None]
  - HEPATIC ENCEPHALOPATHY [None]
  - HEPATIC ENZYME INCREASED [None]
  - HEPATITIS FULMINANT [None]
  - HEPATOCELLULAR DAMAGE [None]
  - HEPATORENAL SYNDROME [None]
  - HYPERBILIRUBINAEMIA [None]
  - JAUNDICE [None]
  - PROTHROMBIN TIME SHORTENED [None]
  - RENAL FAILURE [None]
